FAERS Safety Report 7853798-4 (Version None)
Quarter: 2011Q4

REPORT INFORMATION
  Report Type: 
  Country: None (occurrence: None)
  Receive Date: 20111026
  Receipt Date: 20111019
  Transmission Date: 20120403
  Serious: Yes (Other)
  Sender: FDA-Public Use
  Company Number: CL-PFIZER INC-2011252258

PATIENT
  Age: 63 Year
  Sex: Male

DRUGS (4)
  1. AZULFIDINE [Suspect]
     Indication: SPINAL CORD DISORDER
     Dosage: 500 MG, 1X/DAY
     Route: 048
     Dates: start: 20111005
  2. TRAMADOL [Concomitant]
     Indication: PAIN
     Dosage: 25 GTT, 2X/DAY
     Dates: start: 20110101
  3. URSO FALK [Concomitant]
     Indication: LIVER DISORDER
     Dosage: 250MG/DAY
     Dates: start: 20100101
  4. AZULFIDINE [Suspect]
     Dosage: 500 MG, 2X/DAY
     Route: 048

REACTIONS (2)
  - ABDOMINAL PAIN [None]
  - LIVER DISORDER [None]
